FAERS Safety Report 5832442-1 (Version None)
Quarter: 2008Q3

REPORT INFORMATION
  Report Type: 
  Country: None (occurrence: None)
  Receive Date: 20080804
  Receipt Date: 20080730
  Transmission Date: 20090109
  Serious: Yes (Life-Threatening, Hospitalization)
  Sender: FDA-Public Use
  Company Number: FR-SANOFI-SYNTHELABO-F01200801254

PATIENT
  Sex: Male

DRUGS (6)
  1. FLURBIPROFEN [Concomitant]
     Indication: ANGINA PECTORIS
     Dosage: 100 MG
     Dates: start: 20080629
  2. PAROXETINE HCL [Concomitant]
     Indication: DEPRESSION
     Dosage: 20 MG
     Dates: start: 20050101
  3. AMLODIPINE BESYLATE [Concomitant]
     Indication: HYPERCHOLESTEROLAEMIA
     Dosage: 20 MG
     Dates: start: 19980201
  4. PINDOLOL [Concomitant]
     Indication: ANGINA PECTORIS
     Dosage: 50 MG
     Dates: start: 20080207
  5. BICALUTAMIDE [Suspect]
     Dosage: 50 MG
     Route: 048
     Dates: start: 20080425, end: 20080524
  6. LEUPROLIDE ACETATE [Suspect]
     Indication: PROSTATE CANCER
     Dosage: 22.5 MG
     Route: 058
     Dates: start: 20080425, end: 20080425

REACTIONS (2)
  - RENAL FAILURE ACUTE [None]
  - URETERIC OBSTRUCTION [None]
